FAERS Safety Report 9667834 (Version 2)
Quarter: 2013Q4

REPORT INFORMATION
  Report Type: Spontaneous
  Country: US (occurrence: None)
  Receive Date: 20131101
  Receipt Date: 20131112
  Transmission Date: 20140711
  Serious: Yes (Other)
  Sender: FDA-Public Use
  Company Number: 20130557

PATIENT
  Age: 85 Year
  Sex: Female

DRUGS (1)
  1. VENOFER [Suspect]
     Indication: IRON DEFICIENCY ANAEMIA
     Dosage: 200 MG IN 100ML NSS  OVER 1 HR INTRAVENOUS
     Route: 042
     Dates: start: 20131001

REACTIONS (3)
  - Injection site pain [None]
  - Cellulitis [None]
  - Product quality issue [None]
